FAERS Safety Report 6639466-5 (Version None)
Quarter: 2010Q1

REPORT INFORMATION
  Report Type: 
  Country: None (occurrence: None)
  Receive Date: 20100315
  Receipt Date: 20100301
  Transmission Date: 20100710
  Serious: Yes (Hospitalization)
  Sender: FDA-Public Use
  Company Number: 2010AC000037

PATIENT
  Age: 74 Year
  Sex: Female

DRUGS (37)
  1. DIGOXIN [Suspect]
     Dosage: 0.125 MG;QD;PO
     Route: 048
     Dates: start: 20010501, end: 20010601
  2. DIGOXIN [Suspect]
     Dosage: .125 MG PO
     Dates: start: 20041201
  3. COLACE [Concomitant]
  4. TYLENOL-500 [Concomitant]
  5. PROTONIX [Concomitant]
  6. NITROSTAT [Concomitant]
  7. PREDNISONE [Concomitant]
  8. ASPIRIN [Concomitant]
  9. CARDIZEM [Concomitant]
  10. ZOCOR [Concomitant]
  11. LASIX [Concomitant]
  12. METHOTREXATE [Concomitant]
  13. LISINOPRIL [Concomitant]
  14. AMIODARONE HCL [Concomitant]
  15. . [Concomitant]
  16. CALCIUM [Concomitant]
  17. NITROGLYCERIN [Concomitant]
  18. . [Concomitant]
  19. ACETAMINOPHEN [Concomitant]
  20. FUROSEMIDE [Concomitant]
  21. COREG [Concomitant]
  22. . [Concomitant]
  23. FERROUS SULFATE TAB [Concomitant]
  24. . [Concomitant]
  25. SOLU-MEDROL [Concomitant]
  26. WARFARIN SODIUM [Concomitant]
  27. . [Concomitant]
  28. VIOXX [Concomitant]
  29. EPINEPHRINE [Concomitant]
  30. . [Concomitant]
  31. . [Concomitant]
  32. . [Concomitant]
  33. . [Concomitant]
  34. . [Concomitant]
  35. . [Concomitant]
  36. . [Concomitant]
  37. . [Concomitant]

REACTIONS (18)
  - ACUTE CORONARY SYNDROME [None]
  - ANAEMIA [None]
  - ANGINA UNSTABLE [None]
  - ATRIAL FIBRILLATION [None]
  - CARDIAC FAILURE CONGESTIVE [None]
  - COAGULOPATHY [None]
  - DEMENTIA ALZHEIMER'S TYPE [None]
  - DIABETES MELLITUS [None]
  - GASTRIC ULCER HAEMORRHAGE [None]
  - HUMERUS FRACTURE [None]
  - HYPOTENSION [None]
  - INTERNATIONAL NORMALISED RATIO INCREASED [None]
  - MYOCARDIAL INFARCTION [None]
  - POLYURIA [None]
  - PROTHROMBIN TIME PROLONGED [None]
  - SYNCOPE [None]
  - THERAPEUTIC AGENT TOXICITY [None]
  - TREATMENT NONCOMPLIANCE [None]
